FAERS Safety Report 5600296-4 (Version None)
Quarter: 2007Q4

REPORT INFORMATION
  Report Type: 
  Country: None (occurrence: None)
  Receive Date: 20071227
  Receipt Date: 20070716
  Transmission Date: 20080405
  Serious: Yes (Other)
  Sender: FDA-Public Use
  Company Number: 2007S1000196

PATIENT
  Age: 48 Year
  Sex: Female

DRUGS (2)
  1. SORIATANE [Suspect]
     Indication: PUSTULAR PSORIASIS
     Dosage: 35 MG;QD;PO
     Route: 048
     Dates: start: 20070531
  2. OMEGA-3 TRIGLYCERIDES [Concomitant]

REACTIONS (2)
  - HYPERCHOLESTEROLAEMIA [None]
  - HYPERTRIGLYCERIDAEMIA [None]
